FAERS Safety Report 14085628 (Version 1)
Quarter: 2017Q4

REPORT INFORMATION
  Report Type: Spontaneous
  Country: US (occurrence: US)
  Receive Date: 20171013
  Receipt Date: 20171013
  Transmission Date: 20180321
  Serious: No
  Sender: FDA-Public Use
  Company Number: US-SHIRE-US201716889

PATIENT

DRUGS (2)
  1. XIIDRA [Suspect]
     Active Substance: LIFITEGRAST
     Indication: DRY EYE
     Dosage: 1 GTT, 2X/DAY:BID
     Route: 065
     Dates: start: 201703, end: 20170713
  2. XIIDRA [Suspect]
     Active Substance: LIFITEGRAST
     Dosage: UNK
     Route: 065
     Dates: start: 20170723

REACTIONS (6)
  - Instillation site reaction [Unknown]
  - Instillation site pruritus [Unknown]
  - Instillation site erythema [Unknown]
  - Vision blurred [Unknown]
  - Instillation site swelling [Unknown]
  - Instillation site pain [Unknown]
